FAERS Safety Report 7385982-0 (Version None)
Quarter: 2011Q1

REPORT INFORMATION
  Report Type: 
  Country: None (occurrence: None)
  Receive Date: 20110331
  Receipt Date: 20110321
  Transmission Date: 20110831
  Serious: Yes (Hospitalization)
  Sender: FDA-Public Use
  Company Number: FR-SANOFI-AVENTIS-2011SA017392

PATIENT
  Age: 24 Year
  Sex: Female

DRUGS (8)
  1. AUGMENTIN [Suspect]
     Route: 048
     Dates: start: 20101216, end: 20110120
  2. AUGMENTIN [Suspect]
     Route: 042
     Dates: start: 20110120, end: 20110121
  3. LOVENOX [Suspect]
     Route: 058
     Dates: start: 20101216, end: 20110121
  4. ACUPAN [Concomitant]
     Route: 051
     Dates: start: 20101216
  5. VALACICLOVIR [Concomitant]
     Route: 048
  6. PERFALGAN [Suspect]
     Route: 042
     Dates: start: 20110120, end: 20110121
  7. DELURSAN [Concomitant]
     Route: 048
  8. ACETAMINOPHEN [Suspect]
     Route: 048
     Dates: start: 20101216, end: 20110120

REACTIONS (4)
  - CHOLESTATIC LIVER INJURY [None]
  - BLOOD ALKALINE PHOSPHATASE INCREASED [None]
  - PANCYTOPENIA [None]
  - ALANINE AMINOTRANSFERASE INCREASED [None]
